FAERS Safety Report 5501690-2 (Version None)
Quarter: 2007Q4

REPORT INFORMATION
  Report Type: 
  Country: None (occurrence: None)
  Receive Date: 20071026
  Receipt Date: 20071026
  Transmission Date: 20080405
  Serious: Yes (Life-Threatening)
  Sender: FDA-Public Use
  Company Number: None

PATIENT
  Age: 53 Year
  Sex: Female
  Weight: 236.324 kg

DRUGS (1)
  1. FUROSEMIDE [Suspect]
     Indication: OEDEMA

REACTIONS (2)
  - POLYURIA [None]
  - RENAL FAILURE ACUTE [None]
